FAERS Safety Report 5747463-7 (Version None)
Quarter: 2008Q2

REPORT INFORMATION
  Report Type: 
  Country: None (occurrence: None)
  Receive Date: 20080523
  Receipt Date: 20080515
  Transmission Date: 20081010
  Serious: Yes (Hospitalization)
  Sender: FDA-Public Use
  Company Number: GB-BAYER-200811298BNE

PATIENT
  Age: 74 Year
  Sex: Male

DRUGS (5)
  1. NIFEDIPINE [Suspect]
     Indication: DRUG USE FOR UNKNOWN INDICATION
     Dosage: AS USED: 60 MG
  2. EPREX [Suspect]
     Indication: ANAEMIA
     Route: 058
     Dates: start: 20010607, end: 20010712
  3. EPREX [Suspect]
     Route: 058
     Dates: start: 20000829, end: 20010606
  4. ALFACALCIDOL [Concomitant]
     Indication: DRUG USE FOR UNKNOWN INDICATION
  5. VENOFER [Concomitant]
     Indication: IRON DEFICIENCY

REACTIONS (3)
  - ANTI-ERYTHROPOIETIN ANTIBODY POSITIVE [None]
  - APLASIA PURE RED CELL [None]
  - THERAPEUTIC RESPONSE DECREASED [None]
